FAERS Safety Report 7287161-4 (Version None)
Quarter: 2010Q4

REPORT INFORMATION
  Report Type: 
  Country: None (occurrence: None)
  Receive Date: 20101220
  Receipt Date: 20091106
  Transmission Date: 20110411
  Serious: Yes (Hospitalization, Other)
  Sender: FDA-Public Use
  Company Number: A-US2009-26579

PATIENT
  Age: 15 Month
  Sex: Male

DRUGS (6)
  1. ZAVESCA [Suspect]
     Indication: NIEMANN-PICK DISEASE
     Dosage: ORAL
     Route: 048
     Dates: start: 20081023, end: 20090421
  2. KEPPRA [Concomitant]
  3. AXID [Concomitant]
  4. PREVACID [Concomitant]
  5. CLARITIN [Concomitant]
  6. RHINOCORT [Concomitant]

REACTIONS (5)
  - ADENOTONSILLECTOMY [None]
  - EAR TUBE REMOVAL [None]
  - EPISTAXIS [None]
  - HAEMORRHAGE [None]
  - VASCULAR CAUTERISATION [None]
